FAERS Safety Report 12111199 (Version 1)
Quarter: 2016Q1

REPORT INFORMATION
  Report Type: Spontaneous
  Country: US (occurrence: US)
  Receive Date: 20160224
  Receipt Date: 20160224
  Transmission Date: 20160526
  Serious: Yes (Other)
  Sender: FDA-Public Use
  Company Number: US-TEIKOKU PHARMA USA-TPU2016-00090

PATIENT
  Sex: Female
  Weight: 51.76 kg

DRUGS (10)
  1. FLEXERIL [Concomitant]
     Active Substance: CYCLOBENZAPRINE HYDROCHLORIDE
     Indication: MUSCLE RELAXANT THERAPY
     Dosage: 2 TO 3 TIMES DAILY
     Route: 048
  2. LINZESS [Concomitant]
     Active Substance: LINACLOTIDE
     Indication: CONSTIPATION
     Route: 048
  3. LIDOCAINE PATCH [Suspect]
     Active Substance: LIDOCAINE
     Dosage: NOW USING ONE PATCH EVERY NIGHT ON LOW BACK
     Route: 061
  4. PREMIPAXOLE [Concomitant]
     Indication: RESTLESS LEGS SYNDROME
     Route: 048
  5. UNKNOWN CARDIAC DRUG [Suspect]
     Active Substance: UNSPECIFIED INGREDIENT
     Dates: start: 2015
  6. SYNTHROID [Concomitant]
     Active Substance: LEVOTHYROXINE SODIUM
     Indication: HYPOTHYROIDISM
     Route: 048
  7. NEXIUM [Concomitant]
     Active Substance: ESOMEPRAZOLE MAGNESIUM
     Indication: GASTROOESOPHAGEAL REFLUX DISEASE
     Route: 048
  8. LIDOCAINE PATCH [Suspect]
     Active Substance: LIDOCAINE
     Indication: MUSCULOSKELETAL DISCOMFORT
     Dosage: SHE WAS USING 3 PATCHES AT A?TIME IN THE PAST
     Route: 061
  9. LIPITOR [Concomitant]
     Active Substance: ATORVASTATIN CALCIUM
     Indication: BLOOD CHOLESTEROL
     Route: 048
  10. TORADOL [Concomitant]
     Active Substance: KETOROLAC TROMETHAMINE
     Indication: PAIN
     Route: 048

REACTIONS (7)
  - Product adhesion issue [None]
  - Shoulder operation [Unknown]
  - Carpal tunnel syndrome [Unknown]
  - Hypertension [Not Recovered/Not Resolved]
  - Arterial stenosis [Not Recovered/Not Resolved]
  - Spinal fusion surgery [Unknown]
  - Radiculotomy [Unknown]

NARRATIVE: CASE EVENT DATE: 2014
